FAERS Safety Report 4836906-9 (Version None)
Quarter: 2005Q4

REPORT INFORMATION
  Report Type: 
  Country: None (occurrence: None)
  Receive Date: 20051123
  Receipt Date: 20051108
  Transmission Date: 20060501
  Serious: Yes (Death, Hospitalization)
  Sender: FDA-Public Use
  Company Number: US-MERCK-0511USA01448

PATIENT
  Age: 72 Year
  Sex: Male
  Weight: 89 kg

DRUGS (5)
  1. VIOXX [Suspect]
     Indication: BACK PAIN
     Route: 048
     Dates: start: 20000525, end: 20001002
  2. VIOXX [Suspect]
     Route: 048
     Dates: start: 20001002, end: 20010805
  3. LIPITOR [Concomitant]
     Indication: HYPERLIPIDAEMIA
     Route: 065
  4. TERAZOSIN HYDROCHLORIDE [Concomitant]
     Route: 065
  5. VIAGRA [Concomitant]
     Route: 065

REACTIONS (3)
  - CERUMEN IMPACTION [None]
  - DERMAL CYST [None]
  - MYOCARDIAL INFARCTION [None]
